FAERS Safety Report 7597790-6 (Version None)
Quarter: 2011Q3

REPORT INFORMATION
  Report Type: 
  Country: None (occurrence: None)
  Receive Date: 20110708
  Receipt Date: 20110630
  Transmission Date: 20111222
  Serious: Yes (Other)
  Sender: FDA-Public Use
  Company Number: ES-ABBOTT-11P-144-0836482-00

PATIENT
  Sex: Female

DRUGS (1)
  1. HUMIRA [Suspect]
     Indication: PSORIASIS
     Route: 058
     Dates: start: 20070101, end: 20101002

REACTIONS (3)
  - MATERNAL EXPOSURE DURING PREGNANCY [None]
  - ABNORMAL LABOUR [None]
  - FORCEPS DELIVERY [None]
